FAERS Safety Report 11155059 (Version 2)
Quarter: 2015Q3

REPORT INFORMATION
  Report Type: Spontaneous
  Country: US (occurrence: US)
  Receive Date: 20150602
  Receipt Date: 20150807
  Transmission Date: 20151125
  Serious: Yes (Other)
  Sender: FDA-Public Use
  Company Number: US-ELI_LILLY_AND_COMPANY-US201505010476

PATIENT
  Sex: Female

DRUGS (1)
  1. HUMALOG [Suspect]
     Active Substance: INSULIN LISPRO
     Indication: TYPE 2 DIABETES MELLITUS
     Dosage: 30 U, WITH MEALS
     Route: 065
     Dates: start: 2010

REACTIONS (13)
  - Eye haemorrhage [Unknown]
  - Hypertension [Unknown]
  - Incorrect product storage [Unknown]
  - Sleep apnoea syndrome [Unknown]
  - Glaucoma [Unknown]
  - Vision blurred [Unknown]
  - Memory impairment [Unknown]
  - Sinus disorder [Unknown]
  - Fatigue [Unknown]
  - Oxygen saturation decreased [Unknown]
  - Chest pain [Unknown]
  - Brain hypoxia [Unknown]
  - Blood glucose increased [Unknown]

NARRATIVE: CASE EVENT DATE: 2013
